FAERS Safety Report 4291882-5 (Version None)
Quarter: 2004Q1

REPORT INFORMATION
  Report Type: 
  Country: None (occurrence: None)
  Receive Date: 20040211
  Receipt Date: 20030821
  Transmission Date: 20041129
  Serious: Yes (Life-Threatening, Hospitalization, Disabling, Other)
  Sender: FDA-Public Use
  Company Number: US-GLAXOSMITHKLINE-A0423111A

PATIENT
  Age: 47 Year
  Sex: Female
  Weight: 82.3 kg

DRUGS (2)
  1. IMITREX [Suspect]
     Indication: MIGRAINE
     Dosage: 6MG SINGLE DOSE
     Route: 058
  2. CELEXA [Suspect]
     Indication: DEPRESSION
     Dosage: 40MG PER DAY
     Route: 048
     Dates: end: 20030625

REACTIONS (2)
  - BRADYCARDIA [None]
  - SYNCOPE [None]
